FAERS Safety Report 4579728-9 (Version None)
Quarter: 2005Q1

REPORT INFORMATION
  Report Type: 
  Country: None (occurrence: None)
  Receive Date: 20050210
  Receipt Date: 20050210
  Transmission Date: 20050727
  Serious: Yes (Other)
  Sender: FDA-Public Use
  Company Number: None

PATIENT
  Age: 36 Year
  Sex: Male
  Weight: 98.8842 kg

DRUGS (1)
  1. CLOZAPINE [Suspect]
     Dosage: 400MG DAILY ORAL
     Route: 048

REACTIONS (1)
  - WEIGHT INCREASED [None]
